FAERS Safety Report 25384882 (Version 1)
Quarter: 2025Q2

REPORT INFORMATION
  Report Type: Spontaneous
  Country: IT (occurrence: IT)
  Receive Date: 20250602
  Receipt Date: 20250602
  Transmission Date: 20250717
  Serious: Yes (Death, Other)
  Sender: FRESENIUS KABI
  Company Number: None

PATIENT
  Age: 77 Year
  Sex: Male
  Weight: 75 kg

DRUGS (9)
  1. PIPERACILLIN AND TAZOBACTAM [Suspect]
     Active Substance: PIPERACILLIN SODIUM\TAZOBACTAM SODIUM
     Indication: Product used for unknown indication
     Route: 042
     Dates: start: 20250427, end: 20250430
  2. METHOTREXATE (METHOTREXATE SODIUM) [Suspect]
     Active Substance: METHOTREXATE SODIUM
     Indication: Central nervous system lymphoma
     Route: 042
     Dates: start: 20250405, end: 20250405
  3. METHOTREXATE (METHOTREXATE SODIUM) [Suspect]
     Active Substance: METHOTREXATE SODIUM
     Route: 042
     Dates: start: 20250429, end: 20250429
  4. PANTOPRAZOLE [Suspect]
     Active Substance: PANTOPRAZOLE
     Indication: Product used for unknown indication
     Dates: start: 20250426, end: 20250430
  5. RIXATHON [RITUXIMAB] [Concomitant]
     Indication: Product used for unknown indication
  6. DELAPRIL + INDAPAMIDE [Concomitant]
     Indication: Product used for unknown indication
  7. ACICLOVIR [ACICLOVIR] [Concomitant]
     Indication: Product used for unknown indication
  8. BISOPROLOL FUMARATE [Concomitant]
     Active Substance: BISOPROLOL FUMARATE
     Indication: Product used for unknown indication
  9. AMLODIPINE [Concomitant]
     Active Substance: AMLODIPINE BESYLATE
     Indication: Product used for unknown indication

REACTIONS (1)
  - Acute kidney injury [Fatal]

NARRATIVE: CASE EVENT DATE: 20250430
